FAERS Safety Report 20449783 (Version 1)
Quarter: 2022Q1

REPORT INFORMATION
  Report Type: Spontaneous
  Country: ES (occurrence: ES)
  Receive Date: 20220209
  Receipt Date: 20220209
  Transmission Date: 20220423
  Serious: Yes (Hospitalization)
  Sender: FDA-Public Use
  Company Number: ES-EXELIXIS-CABO-22048797

PATIENT
  Age: 76 Year
  Sex: Male

DRUGS (1)
  1. CABOMETYX [Suspect]
     Active Substance: CABOZANTINIB S-MALATE
     Indication: Product used for unknown indication
     Dosage: 40 MG, MONTHLY
     Route: 048
     Dates: start: 201901

REACTIONS (2)
  - COVID-19 [Recovered/Resolved]
  - Inappropriate schedule of product administration [Unknown]

NARRATIVE: CASE EVENT DATE: 20190101
